FAERS Safety Report 5726107-4 (Version None)
Quarter: 2008Q2

REPORT INFORMATION
  Report Type: 
  Country: None (occurrence: None)
  Receive Date: 20080501
  Receipt Date: 20080501
  Transmission Date: 20081010
  Serious: No
  Sender: FDA-Public Use
  Company Number: None

PATIENT
  Age: 52 Year
  Sex: Female
  Weight: 58.0604 kg

DRUGS (1)
  1. CLIMARA [Suspect]
     Indication: ARTIFICIAL MENOPAUSE
     Dates: start: 20080211, end: 20080401

REACTIONS (4)
  - DRUG EFFECT DECREASED [None]
  - HEADACHE [None]
  - HOT FLUSH [None]
  - PHARMACEUTICAL PRODUCT COMPLAINT [None]
